FAERS Safety Report 6968593-8 (Version None)
Quarter: 2010Q3

REPORT INFORMATION
  Report Type: 
  Country: None (occurrence: None)
  Receive Date: 20100907
  Receipt Date: 20100826
  Transmission Date: 20110219
  Serious: Yes (Other)
  Sender: FDA-Public Use
  Company Number: DE-PFIZER INC-2010108218

PATIENT
  Sex: Female

DRUGS (1)
  1. LYRICA [Suspect]
     Dosage: UNK

REACTIONS (15)
  - ARRHYTHMIA [None]
  - ASTHENIA [None]
  - CHEST DISCOMFORT [None]
  - CONFUSIONAL STATE [None]
  - EYE DISORDER [None]
  - HYPOAESTHESIA [None]
  - INCREASED APPETITE [None]
  - IRRITABILITY [None]
  - JOINT SWELLING [None]
  - MUSCLE SPASMS [None]
  - MUSCLE TWITCHING [None]
  - NASAL DRYNESS [None]
  - PALPITATIONS [None]
  - RESPIRATORY DISORDER [None]
  - THIRST [None]
